FAERS Safety Report 13782774 (Version 1)
Quarter: 2017Q3

REPORT INFORMATION
  Report Type: Spontaneous
  Country: CA (occurrence: CA)
  Receive Date: 20170724
  Receipt Date: 20170724
  Transmission Date: 20171127
  Serious: Yes (Hospitalization)
  Sender: FDA-Public Use
  Company Number: CA-GALDERMA-CA17005121

PATIENT
  Age: 13 Year
  Sex: Male

DRUGS (2)
  1. DOXYCYCLINE. [Suspect]
     Active Substance: DOXYCYCLINE
     Indication: ACNE CONGLOBATA
  2. ISOTRETINOIN [Suspect]
     Active Substance: ISOTRETINOIN
     Indication: ACNE CONGLOBATA

REACTIONS (8)
  - Arthralgia [Unknown]
  - Drug administered to patient of inappropriate age [Recovered/Resolved]
  - Pyrexia [Unknown]
  - Myalgia [Unknown]
  - Acne [Unknown]
  - Off label use [Recovered/Resolved]
  - Neutrophilic dermatosis [Unknown]
  - Intentional product use issue [Recovered/Resolved]
